FAERS Safety Report 5445456-0 (Version None)
Quarter: 2007Q3

REPORT INFORMATION
  Report Type: 
  Country: None (occurrence: None)
  Receive Date: 20070906
  Receipt Date: 20070905
  Transmission Date: 20080115
  Serious: Yes (Hospitalization)
  Sender: FDA-Public Use
  Company Number: BR-ROXANE LABORATORIES, INC-2007-DE-05280GD

PATIENT
  Age: 41 Year
  Sex: Female

DRUGS (1)
  1. PREDNISONE TAB [Suspect]
     Indication: RHEUMATOID ARTHRITIS
     Route: 051
     Dates: start: 19890101

REACTIONS (2)
  - CUTANEOUS LEISHMANIASIS [None]
  - DISEASE RECURRENCE [None]
